FAERS Safety Report 4352862-4 (Version None)
Quarter: 2004Q2

REPORT INFORMATION
  Report Type: 
  Country: None (occurrence: None)
  Receive Date: 20040429
  Receipt Date: 20040420
  Transmission Date: 20050107
  Serious: No
  Sender: FDA-Public Use
  Company Number: 2004-BP-03024BP

PATIENT
  Age: 45 Year
  Sex: Female

DRUGS (3)
  1. VIRAMUNE [Suspect]
     Indication: HIV INFECTION
     Dates: start: 20040130
  2. DIDANOSINE (DIDANOSINE) [Suspect]
     Indication: HIV INFECTION
     Dates: start: 20040130
  3. ZIDOVUDINE [Concomitant]
     Indication: HIV INFECTION
     Dates: start: 20040130

REACTIONS (1)
  - BLOOD AMYLASE INCREASED [None]
